FAERS Safety Report 17016031 (Version 1)
Quarter: 2019Q4

REPORT INFORMATION
  Report Type: Spontaneous
  Country: US (occurrence: US)
  Receive Date: 20191003
  Receipt Date: 20191003
  Transmission Date: 20200122
  Serious: Yes (Hospitalization, Other)
  Sender: FDA-Public Use
  Company Number: None

PATIENT
  Sex: Male
  Weight: 81.65 kg

DRUGS (3)
  1. CYCLOBENZAPRINE 10MG TAB [Suspect]
     Active Substance: CYCLOBENZAPRINE
     Indication: SCIATICA
     Dosage: ?          QUANTITY:10 MG MILLIGRAM(S);?
     Route: 030
     Dates: start: 20190325, end: 20190402
  2. HYDROCODONE/ACETAMINOPHEN 5-325MG TAB [Suspect]
     Active Substance: ACETAMINOPHEN\HYDROCODONE
     Indication: SCIATICA
     Dosage: ?          QUANTITY:2 DF DOSAGE FORM;?
     Route: 048
     Dates: start: 20190325, end: 20190331
  3. ASPIRIN 81MG [Concomitant]
     Active Substance: ASPIRIN

REACTIONS (7)
  - Confusional state [None]
  - Emotional disorder [None]
  - Hallucination [None]
  - Paranoia [None]
  - Aphasia [None]
  - Sleep deficit [None]
  - Dementia [None]
